FAERS Safety Report 12130979 (Version 4)
Quarter: 2017Q2

REPORT INFORMATION
  Report Type: Spontaneous
  Country: US (occurrence: US)
  Receive Date: 20160301
  Receipt Date: 20170417
  Transmission Date: 20170829
  Serious: Yes (Other)
  Sender: FDA-Public Use
  Company Number: US-PFIZER INC-2016095593

PATIENT
  Age: 35 Year
  Sex: Female

DRUGS (15)
  1. BACLOFEN. [Concomitant]
     Active Substance: BACLOFEN
     Indication: MYOSITIS
     Dosage: 20 MG, 2X/DAY
     Dates: start: 2009
  2. TRAZODONE [Concomitant]
     Active Substance: TRAZODONE HYDROCHLORIDE
     Indication: SLEEP DISORDER THERAPY
     Dosage: 150 MG, 1X/DAY QHS PRN
     Dates: start: 2013
  3. GILDESS FE [Concomitant]
     Active Substance: ETHINYL ESTRADIOL\NORETHINDRONE
     Indication: CONTRACEPTION
     Dosage: 1 DF, DAILY
     Route: 048
  4. GILDESS FE [Concomitant]
     Active Substance: ETHINYL ESTRADIOL\NORETHINDRONE
     Dosage: 1/70 MG/MCG, DAILY
     Route: 048
     Dates: start: 2010
  5. MICROGESTIN [Concomitant]
     Active Substance: ETHINYL ESTRADIOL\NORETHINDRONE ACETATE
     Indication: CONTRACEPTION
     Dosage: UNK
  6. ATIVAN [Concomitant]
     Active Substance: LORAZEPAM
     Dosage: 1/2 - 1 TAB, 3X/DAY PRN
     Dates: start: 2012
  7. TRAZODONE [Concomitant]
     Active Substance: TRAZODONE HYDROCHLORIDE
     Indication: INSOMNIA
     Dosage: 125 MG, 1X/DAY (AT BED)
     Dates: start: 201506
  8. ATIVAN [Concomitant]
     Active Substance: LORAZEPAM
     Indication: ANXIETY
     Dosage: 1 MG, 3X/DAY
  9. LEVSIN [Concomitant]
     Active Substance: HYOSCYAMINE SULFATE
     Indication: ABDOMINAL PAIN
     Dosage: 0.125 MG, EVERY 4 HRS
     Dates: start: 20160308, end: 20160405
  10. LYRICA [Suspect]
     Active Substance: PREGABALIN
     Indication: MYOSITIS
  11. ATIVAN [Concomitant]
     Active Substance: LORAZEPAM
     Dosage: HALF TO ONE TABLET 3X/DAY AS NEEDED (AT VARYING DOSES FOR 7+ YEARS)
  12. TRAZODONE [Concomitant]
     Active Substance: TRAZODONE HYDROCHLORIDE
     Dosage: 150 MG, 1X/DAY EVERY NIGHT AS NEEDED
  13. LYRICA [Suspect]
     Active Substance: PREGABALIN
     Indication: FIBROMYALGIA
     Dosage: 100 MG, 2X/DAY
     Route: 048
     Dates: start: 2009
  14. LYRICA [Suspect]
     Active Substance: PREGABALIN
     Indication: MYALGIA
     Dosage: 100 MG, 2X/DAY
     Route: 048
     Dates: start: 2014
  15. BACLOFEN. [Concomitant]
     Active Substance: BACLOFEN
     Dosage: 20 MG, 2X/DAY
     Dates: start: 2012

REACTIONS (7)
  - Bone contusion [Unknown]
  - Vomiting [Recovered/Resolved]
  - Withdrawal syndrome [Recovered/Resolved]
  - Seizure [Unknown]
  - Nausea [Unknown]
  - Malaise [Unknown]
  - Contusion [Unknown]

NARRATIVE: CASE EVENT DATE: 20160215
